FAERS Safety Report 10705394 (Version 1)
Quarter: 2015Q1

REPORT INFORMATION
  Report Type: Spontaneous
  Country: US (occurrence: US)
  Receive Date: 20150112
  Receipt Date: 20150112
  Transmission Date: 20150721
  Serious: Yes (Hospitalization)
  Sender: FDA-Public Use
  Company Number: US-GLAXOSMITHKLINE-A1058086A

PATIENT

DRUGS (2)
  1. PROMACTA [Suspect]
     Active Substance: ELTROMBOPAG OLAMINE
     Indication: APLASTIC ANAEMIA
     Dosage: 75 MG TWICE A DAY
     Route: 048
     Dates: start: 20131127
  2. ARANESP [Concomitant]
     Active Substance: DARBEPOETIN ALFA

REACTIONS (1)
  - Haemorrhagic disorder [Not Recovered/Not Resolved]
